FAERS Safety Report 18401586 (Version 1)
Quarter: 2020Q4

REPORT INFORMATION
  Report Type: Report from Study
  Country: BR (occurrence: BR)
  Receive Date: 20201019
  Receipt Date: 20201019
  Transmission Date: 20210114
  Serious: Yes (Other)
  Sender: FDA-Public Use
  Company Number: NVSC2020BR280107

PATIENT
  Sex: Male

DRUGS (1)
  1. ONBRIZE [Suspect]
     Active Substance: INDACATEROL MALEATE
     Indication: LUNG DISORDER
     Dosage: 150 UG, QD, CONTINUOUS USE AT NIGHT, STARTED LOG TIME AGO
     Route: 065

REACTIONS (5)
  - COVID-19 [Unknown]
  - Ill-defined disorder [Unknown]
  - Fatigue [Unknown]
  - Product use in unapproved indication [Unknown]
  - Malaise [Unknown]
